FAERS Safety Report 21086135 (Version 1)
Quarter: 2022Q3

REPORT INFORMATION
  Report Type: Spontaneous
  Country: US (occurrence: US)
  Receive Date: 20220715
  Receipt Date: 20220715
  Transmission Date: 20221026
  Serious: Yes (Other)
  Sender: FDA-Public Use
  Company Number: US-ABBVIE-22K-163-4467120-00

PATIENT
  Sex: Female

DRUGS (2)
  1. DEPAKOTE ER [Suspect]
     Active Substance: DIVALPROEX SODIUM
     Indication: Epilepsy
     Dosage: UNKNOWN
     Route: 048
     Dates: end: 2002
  2. DEPAKOTE ER [Suspect]
     Active Substance: DIVALPROEX SODIUM
     Dosage: UNKNOWN
     Route: 048
     Dates: start: 2002

REACTIONS (2)
  - Generalised tonic-clonic seizure [Unknown]
  - Anxiety [Not Recovered/Not Resolved]
